FAERS Safety Report 6647959-X (Version None)
Quarter: 2010Q1

REPORT INFORMATION
  Report Type: 
  Country: None (occurrence: None)
  Receive Date: 20100324
  Receipt Date: 20100315
  Transmission Date: 20100710
  Serious: Yes (Other)
  Sender: FDA-Public Use
  Company Number: US-ASTRAZENECA-2009SE09163

PATIENT
  Age: 84 Year
  Sex: Male
  Weight: 77.1 kg

DRUGS (2)
  1. PRILOSEC OTC [Suspect]
     Indication: PROPHYLAXIS
     Route: 048
     Dates: start: 20090501
  2. PREDNISONE [Concomitant]
     Indication: POLYMYALGIA RHEUMATICA
     Dates: start: 20090501

REACTIONS (1)
  - ATRIAL FIBRILLATION [None]
